FAERS Safety Report 5331661-0 (Version None)
Quarter: 2007Q2

REPORT INFORMATION
  Report Type: 
  Country: None (occurrence: None)
  Receive Date: 20070522
  Receipt Date: 20070512
  Transmission Date: 20071010
  Serious: Yes (Other)
  Sender: FDA-Public Use
  Company Number: US-PFIZER INC-2007022379

PATIENT
  Sex: Female
  Weight: 54.4 kg

DRUGS (1)
  1. XALATAN [Suspect]
     Indication: GLAUCOMA
     Route: 047

REACTIONS (6)
  - CATARACT [None]
  - EYE BURNS [None]
  - EYE IRRITATION [None]
  - GLAUCOMA SURGERY [None]
  - LACRIMATION INCREASED [None]
  - WEIGHT INCREASED [None]
